FAERS Safety Report 21978433 (Version 1)
Quarter: 2023Q1

REPORT INFORMATION
  Report Type: Spontaneous
  Country: US (occurrence: US)
  Receive Date: 20230210
  Receipt Date: 20230210
  Transmission Date: 20230418
  Serious: Yes (Other)
  Sender: FDA-Public Use
  Company Number: US-MLMSERVICE-20230125-4062844-1

PATIENT

DRUGS (4)
  1. PREDNISOLONE [Suspect]
     Active Substance: PREDNISOLONE
     Indication: Antiinflammatory therapy
     Dosage: UNK UNK, BID ( 2 TIMES A DAY)
     Route: 061
  2. KENALOG [Suspect]
     Active Substance: TRIAMCINOLONE ACETONIDE
     Indication: Uveitis
     Dosage: UNK (18 MONTHS PRIOR TO REFERRAL)
  3. LOTEPREDNOL [Suspect]
     Active Substance: LOTEPREDNOL
     Indication: Antiinflammatory therapy
     Dosage: UNK, BID (2 TIMES A DAY)
  4. ILEVRO [Concomitant]
     Active Substance: NEPAFENAC
     Indication: Antiinflammatory therapy
     Dosage: UNK UNK, BID (2 TIMES A DAY)
     Route: 061

REACTIONS (5)
  - Iritis [Recovered/Resolved]
  - Condition aggravated [Recovered/Resolved]
  - Intraocular pressure increased [Recovered/Resolved]
  - Open angle glaucoma [Recovered/Resolved]
  - Drug withdrawal syndrome [Unknown]
